FAERS Safety Report 4976199-5 (Version None)
Quarter: 2006Q2

REPORT INFORMATION
  Report Type: 
  Country: None (occurrence: None)
  Receive Date: 20060419
  Receipt Date: 20060413
  Transmission Date: 20061013
  Serious: Yes (Death)
  Sender: FDA-Public Use
  Company Number: 2006PK00697

PATIENT
  Age: 74 Year
  Sex: Female
  Weight: 60 kg

DRUGS (9)
  1. NEXIUM [Suspect]
     Route: 048
     Dates: start: 20060303, end: 20060316
  2. PANGLOBULIN [Suspect]
     Route: 042
     Dates: start: 20060309, end: 20060309
  3. PANGLOBULIN [Suspect]
     Route: 042
     Dates: start: 20060311, end: 20060311
  4. MAXIPIME [Suspect]
     Route: 042
     Dates: start: 20060301, end: 20060316
  5. ZYLORIC [Suspect]
     Route: 048
     Dates: end: 20060316
  6. TEMESTA [Concomitant]
     Route: 048
     Dates: start: 20060303
  7. TORSEMIDE [Concomitant]
     Route: 048
     Dates: start: 20060312, end: 20060316
  8. VALTREX [Concomitant]
     Route: 042
     Dates: start: 20060303, end: 20060316
  9. BACTRIM DS [Concomitant]
     Route: 048
     Dates: start: 20060303, end: 20060315

REACTIONS (2)
  - LIGHT CHAIN DISEASE [None]
  - RENAL FAILURE ACUTE [None]
